FAERS Safety Report 4362395-7 (Version None)
Quarter: 2004Q2

REPORT INFORMATION
  Report Type: 
  Country: None (occurrence: None)
  Receive Date: 20040521
  Receipt Date: 20040507
  Transmission Date: 20050107
  Serious: Yes (Other)
  Sender: FDA-Public Use
  Company Number: NO-JNJFOC-20040303982

PATIENT
  Sex: Female

DRUGS (4)
  1. RISPERDAL [Suspect]
     Route: 049
  2. IMOVANE [Suspect]
     Dosage: AS NECESSARY
     Route: 049
  3. VIVAL [Suspect]
     Indication: ANXIETY
     Route: 049
  4. INSULIN INSULATARD NPH NORDISK [Concomitant]
     Dosage: FROM WEEK 32 OF PREGNANCY
     Route: 042

REACTIONS (1)
  - DRUG EXPOSURE DURING PREGNANCY [None]
